FAERS Safety Report 21228576 (Version 2)
Quarter: 2022Q4

REPORT INFORMATION
  Report Type: Spontaneous
  Country: US (occurrence: US)
  Receive Date: 20220818
  Receipt Date: 20221014
  Transmission Date: 20230113
  Serious: No
  Sender: FDA-Public Use
  Company Number: US-PFIZER INC-202201040853

PATIENT
  Age: 9 Year
  Sex: Male
  Weight: 45.81 kg

DRUGS (2)
  1. GENOTROPIN [Suspect]
     Active Substance: SOMATROPIN
     Indication: Optic nerve hypoplasia
     Dosage: 0.1 INJECTED ONCE A DAY
  2. GENOTROPIN [Suspect]
     Active Substance: SOMATROPIN
     Indication: Hypothyroidism

REACTIONS (4)
  - Off label use [Unknown]
  - Drug dose omission by device [Unknown]
  - Device information output issue [Unknown]
  - Device power source issue [Unknown]

NARRATIVE: CASE EVENT DATE: 20220803
